FAERS Safety Report 7944851-5 (Version None)
Quarter: 2011Q4

REPORT INFORMATION
  Report Type: 
  Country: None (occurrence: None)
  Receive Date: 20111129
  Receipt Date: 20101216
  Transmission Date: 20120403
  Serious: No
  Sender: FDA-Public Use
  Company Number: US-MYLANLABS-2010S1023182

PATIENT
  Sex: Male

DRUGS (2)
  1. AMLODIPINE BESYLATE [Interacting]
     Indication: BLOOD PRESSURE INCREASED
     Route: 048
     Dates: start: 20101118
  2. LISINOPRIL [Suspect]
     Indication: BLOOD PRESSURE INCREASED
     Route: 048
     Dates: start: 20100901

REACTIONS (2)
  - RASH [None]
  - DRUG INTERACTION [None]
